FAERS Safety Report 4699485-5 (Version None)
Quarter: 2005Q2

REPORT INFORMATION
  Report Type: 
  Country: None (occurrence: None)
  Receive Date: 20050622
  Receipt Date: 20050609
  Transmission Date: 20051028
  Serious: Yes (Hospitalization)
  Sender: FDA-Public Use
  Company Number: 2005JP000201

PATIENT
  Age: 43 Year
  Sex: Female

DRUGS (5)
  1. PROGRAF [Suspect]
     Indication: RENAL TRANSPLANT
     Dosage: 13.00 MG, UNKNOWN/D, ORAL
     Route: 048
     Dates: start: 20030713, end: 20040329
  2. CELLCEPT [Suspect]
     Dosage: 1.00 MG, UNKNOWN/D, ORAL
     Route: 048
     Dates: start: 20030713, end: 20030919
  3. MEDROL [Concomitant]
  4. MIZORIBINE (MIZORIBINE) [Concomitant]
  5. TAKEPRON (LANSOPRAZOLE) [Concomitant]

REACTIONS (2)
  - APLASIA PURE RED CELL [None]
  - ERYTHEMA INFECTIOSUM [None]
